FAERS Safety Report 8947915 (Version 3)
Quarter: 2013Q1

REPORT INFORMATION
  Report Type: Spontaneous
  Country: US (occurrence: None)
  Receive Date: 20121127
  Receipt Date: 20130108
  Transmission Date: 20140127
  Serious: Yes (Other)
  Sender: FDA-Public Use
  Company Number: 2012AP004005

PATIENT
  Age: 75 Year
  Sex: Female

DRUGS (4)
  1. FLUTICASONE PROPIONATE [Suspect]
     Indication: CHRONIC OBSTRUCTIVE PULMONARY DISEASE
     Dosage: 1 INH: BID: INH?
     Route: 055
     Dates: start: 20121101, end: 20121101
  2. FLUTICASONE PROPIONATE NASAL SPRAY [Concomitant]
     Indication: ASTHMA
     Dosage: 1 INH; BID;INH?
     Route: 055
     Dates: start: 201204
  3. ATENOLOL [Concomitant]
  4. LYRICA [Concomitant]

REACTIONS (13)
  - Diarrhoea [None]
  - Nausea [None]
  - Coeliac disease [None]
  - Dysphonia [None]
  - Cough [None]
  - Wheezing [None]
  - Ill-defined disorder [None]
  - Bronchitis [None]
  - Asthma [None]
  - Lactose intolerance [None]
  - Drug ineffective [None]
  - Croup infectious [None]
  - Post procedural complication [None]
